FAERS Safety Report 23085169 (Version 5)
Quarter: 2023Q4

REPORT INFORMATION
  Report Type: Spontaneous
  Country: CA (occurrence: CA)
  Receive Date: 20231019
  Receipt Date: 20231228
  Transmission Date: 20240109
  Serious: Yes (Hospitalization, Other)
  Sender: FDA-Public Use
  Company Number: CA-KARYOPHARM-2023KPT002023

PATIENT

DRUGS (3)
  1. XPOVIO [Suspect]
     Active Substance: SELINEXOR
     Indication: Plasma cell myeloma
     Dosage: 80 MG, WEEKLY FOR 4 WEEKS
     Route: 048
     Dates: start: 20230926, end: 20231010
  2. XPOVIO [Suspect]
     Active Substance: SELINEXOR
     Dosage: 80 MG
     Route: 048
     Dates: start: 20231018, end: 202312
  3. DEXAMETHASONE [Concomitant]
     Active Substance: DEXAMETHASONE

REACTIONS (8)
  - Heart rate increased [Unknown]
  - Hypoxia [Recovered/Resolved]
  - Thrombosis [Unknown]
  - Pneumonia [Unknown]
  - Haemoglobin decreased [Not Recovered/Not Resolved]
  - Blood glucose increased [Recovering/Resolving]
  - Sedation [Unknown]
  - Off label use [Unknown]

NARRATIVE: CASE EVENT DATE: 20230101
